FAERS Safety Report 7465759-8 (Version None)
Quarter: 2011Q2

REPORT INFORMATION
  Report Type: 
  Country: None (occurrence: None)
  Receive Date: 20110509
  Receipt Date: 20110428
  Transmission Date: 20111010
  Serious: Yes (Hospitalization)
  Sender: FDA-Public Use
  Company Number: AU-ASTRAZENECA-2011SE24546

PATIENT
  Age: 28 Year
  Sex: Female

DRUGS (3)
  1. INVEGA [Suspect]
     Route: 048
     Dates: start: 20110314, end: 20110315
  2. SEROQUEL [Suspect]
     Route: 048
  3. RISPERIDONE [Suspect]

REACTIONS (1)
  - OCULOGYRIC CRISIS [None]
